FAERS Safety Report 9644651 (Version 2)
Quarter: 2013Q4

REPORT INFORMATION
  Report Type: Spontaneous
  Country: US (occurrence: US)
  Receive Date: 20131025
  Receipt Date: 20131111
  Transmission Date: 20140711
  Serious: No
  Sender: FDA-Public Use
  Company Number: US-009507513-1310USA011576

PATIENT
  Age: 26 Year
  Sex: Female
  Weight: 65.76 kg

DRUGS (2)
  1. IMPLANON [Suspect]
     Indication: CONTRACEPTION
     Dosage: 1 BLANK ROD FOR 3 YEARS
     Route: 059
     Dates: start: 20120922
  2. NAPROXEN [Concomitant]
     Indication: PAIN
     Dosage: 275 MG, PRN

REACTIONS (4)
  - Abdominal pain upper [Not Recovered/Not Resolved]
  - Hot flush [Not Recovered/Not Resolved]
  - Pelvic pain [Not Recovered/Not Resolved]
  - Device breakage [Not Recovered/Not Resolved]
